FAERS Safety Report 24929177 (Version 1)
Quarter: 2025Q1

REPORT INFORMATION
  Report Type: Spontaneous
  Country: US (occurrence: US)
  Receive Date: 20250205
  Receipt Date: 20250205
  Transmission Date: 20250408
  Serious: Yes (Hospitalization)
  Sender: DR REDDYS
  Company Number: US-DRL-USA-USA/2025/01/001689

PATIENT
  Sex: Male
  Weight: 112 kg

DRUGS (1)
  1. CLOZAPINE [Suspect]
     Active Substance: CLOZAPINE
     Indication: Schizophrenia
     Dosage: THREE TIMES A DAY AT BEDTIME
     Route: 065
     Dates: start: 20240802

REACTIONS (2)
  - Hospitalisation [Unknown]
  - Product dose omission issue [Unknown]
